FAERS Safety Report 6938780-3 (Version None)
Quarter: 2010Q3

REPORT INFORMATION
  Report Type: 
  Country: None (occurrence: None)
  Receive Date: 20100824
  Receipt Date: 20100811
  Transmission Date: 20110219
  Serious: Yes (Other)
  Sender: FDA-Public Use
  Company Number: US-ROCHE-707067

PATIENT
  Sex: Male

DRUGS (3)
  1. KLONOPIN [Suspect]
     Route: 048
  2. SEROQUEL [Concomitant]
  3. WELLBUTRIN [Concomitant]

REACTIONS (1)
  - AUTOIMMUNE HEPATITIS [None]
